FAERS Safety Report 6027889-7 (Version None)
Quarter: 2009Q1

REPORT INFORMATION
  Report Type: 
  Country: None (occurrence: None)
  Receive Date: 20090105
  Receipt Date: 20081224
  Transmission Date: 20090719
  Serious: Yes (Other)
  Sender: FDA-Public Use
  Company Number: US-PFIZER INC-2008042161

PATIENT
  Sex: Female
  Weight: 65.76 kg

DRUGS (4)
  1. CHANTIX [Suspect]
     Dates: start: 20060101
  2. ATIVAN [Concomitant]
     Indication: ANXIETY
  3. TRAZODONE [Concomitant]
  4. ABILIFY [Concomitant]

REACTIONS (2)
  - DEPRESSION [None]
  - SLEEP DISORDER [None]
